FAERS Safety Report 7749532-9 (Version None)
Quarter: 2011Q3

REPORT INFORMATION
  Report Type: 
  Country: None (occurrence: None)
  Receive Date: 20110907
  Receipt Date: 20110824
  Transmission Date: 20111222
  Serious: Yes (Hospitalization)
  Sender: FDA-Public Use
  Company Number: 2011196378

PATIENT
  Age: 56 Year
  Sex: Female

DRUGS (7)
  1. DALTEPARIN SODIUM [Suspect]
     Indication: LUNG NEOPLASM MALIGNANT
     Dates: start: 20110506
  2. IBUPROFEN (IBUOPROFEN) [Concomitant]
  3. CISPLATIN [Concomitant]
  4. MORPHINE SULFATE [Concomitant]
  5. TAXOTERE [Concomitant]
  6. ACETAMINOPHEN [Concomitant]
  7. LANSOPRAZOLE [Concomitant]

REACTIONS (2)
  - PYREXIA [None]
  - FATIGUE [None]
